FAERS Safety Report 25736779 (Version 4)
Quarter: 2025Q4

REPORT INFORMATION
  Report Type: Spontaneous
  Country: CA (occurrence: None)
  Receive Date: 20250828
  Receipt Date: 20251221
  Transmission Date: 20260117
  Serious: Yes (Death, Life-Threatening, Hospitalization, Disabling, Other)
  Sender: UCB
  Company Number: CA-UCBSA-2025052431

PATIENT
  Age: 43 Year
  Weight: 96 kg

DRUGS (150)
  1. CIMZIA [Suspect]
     Active Substance: CERTOLIZUMAB PEGOL
     Indication: Psoriasis
     Dosage: 20 DOSAGE FORM
  2. CIMZIA [Suspect]
     Active Substance: CERTOLIZUMAB PEGOL
     Indication: Rheumatoid arthritis
     Dosage: UNK
  3. CERTOLIZUMAB PEGOL [Suspect]
     Active Substance: CERTOLIZUMAB PEGOL
     Indication: Rheumatoid arthritis
     Dosage: 400 MILLIGRAM
  4. CERTOLIZUMAB PEGOL [Suspect]
     Active Substance: CERTOLIZUMAB PEGOL
     Indication: Psoriasis
  5. CETIRIZINE [Suspect]
     Active Substance: CETIRIZINE HYDROCHLORIDE
     Indication: Rheumatoid arthritis
  6. CETIRIZINE [Suspect]
     Active Substance: CETIRIZINE HYDROCHLORIDE
     Indication: Arthritis
     Dosage: 250 MILLIGRAM
  7. CETIRIZINE [Suspect]
     Active Substance: CETIRIZINE HYDROCHLORIDE
     Indication: Off label use
     Dosage: 100 MILLIGRAM
  8. CETIRIZINE [Suspect]
     Active Substance: CETIRIZINE HYDROCHLORIDE
     Dosage: 100 MILLIGRAM
     Route: 061
  9. CETIRIZINE [Suspect]
     Active Substance: CETIRIZINE HYDROCHLORIDE
     Dosage: 250 MILLIGRAM
     Route: 061
  10. CETIRIZINE [Suspect]
     Active Substance: CETIRIZINE HYDROCHLORIDE
     Dosage: 25 MILLIGRAM
  11. CETIRIZINE [Suspect]
     Active Substance: CETIRIZINE HYDROCHLORIDE
     Dosage: 10 MILLIGRAM
  12. ACETAMINOPHEN AND CODEINE [Suspect]
     Active Substance: ACETAMINOPHEN\CODEINE PHOSPHATE
     Indication: Product used for unknown indication
  13. ACTEMRA [Suspect]
     Active Substance: TOCILIZUMAB
     Indication: Rheumatoid arthritis
     Dosage: 30110 MILLIGRAM
  14. ACTEMRA [Suspect]
     Active Substance: TOCILIZUMAB
     Dosage: 29120 MILLIGRAM
  15. ACTEMRA [Suspect]
     Active Substance: TOCILIZUMAB
     Dosage: 752.8 MILLIGRAM
  16. ACTEMRA [Suspect]
     Active Substance: TOCILIZUMAB
     Dosage: 29120 MILLIGRAM
  17. ACTEMRA [Suspect]
     Active Substance: TOCILIZUMAB
     Dosage: 3011.2 MILLIGRAM
  18. ACTEMRA [Suspect]
     Active Substance: TOCILIZUMAB
     Dosage: 7280 MILLIGRAM
  19. ACTEMRA [Suspect]
     Active Substance: TOCILIZUMAB
     Dosage: 7280 MILLIGRAM
  20. ACTEMRA [Suspect]
     Active Substance: TOCILIZUMAB
     Dosage: 752.8 MILLIGRAM
  21. ACTEMRA [Suspect]
     Active Substance: TOCILIZUMAB
     Dosage: UNK
  22. ACTEMRA [Suspect]
     Active Substance: TOCILIZUMAB
     Dosage: UNK
  23. ACTEMRA [Suspect]
     Active Substance: TOCILIZUMAB
     Dosage: 29120 MILLIGRAM
  24. AIMOVIG [Suspect]
     Active Substance: ERENUMAB-AOOE
     Indication: Rheumatoid arthritis
  25. ALENDRONATE SODIUM\CHOLECALCIFEROL [Suspect]
     Active Substance: ALENDRONATE SODIUM\CHOLECALCIFEROL
     Indication: Rheumatoid arthritis
  26. APREPITANT [Suspect]
     Active Substance: APREPITANT
     Indication: Product used for unknown indication
  27. AZATHIOPRINE [Suspect]
     Active Substance: AZATHIOPRINE
     Indication: Product used for unknown indication
  28. BETAMETHASONE [Suspect]
     Active Substance: BETAMETHASONE
     Indication: Product used for unknown indication
  29. BOTULINUM TOXIN TYPE A [Suspect]
     Active Substance: BOTULINUM TOXIN TYPE A
     Indication: Product used for unknown indication
     Dosage: POWDER FOR SOLUTION
  30. BUPRENORPHINE [Suspect]
     Active Substance: BUPRENORPHINE
     Indication: Product used for unknown indication
  31. BUTRANS [Suspect]
     Active Substance: BUPRENORPHINE
     Indication: Product used for unknown indication
  32. CANDESARTAN [Suspect]
     Active Substance: CANDESARTAN
     Indication: Rheumatoid arthritis
  33. CANDESARTAN [Suspect]
     Active Substance: CANDESARTAN
     Indication: Migraine
     Route: 061
  34. CLIOQUINOL [Suspect]
     Active Substance: CLIOQUINOL
     Indication: Product used for unknown indication
  35. COSENTYX [Suspect]
     Active Substance: SECUKINUMAB
     Indication: Psoriatic arthropathy
     Dosage: UNK
  36. DESOGESTREL\ETHINYL ESTRADIOL [Suspect]
     Active Substance: DESOGESTREL\ETHINYL ESTRADIOL
     Indication: Product used for unknown indication
  37. DESOXIMETASONE [Suspect]
     Active Substance: DESOXIMETASONE
     Indication: Product used for unknown indication
  38. DESOXIMETASONE [Suspect]
     Active Substance: DESOXIMETASONE
     Indication: Rheumatoid arthritis
  39. DESOXIMETASONE [Suspect]
     Active Substance: DESOXIMETASONE
     Dosage: 100 MILLIGRAM
  40. DESOXIMETASONE [Suspect]
     Active Substance: DESOXIMETASONE
     Dosage: 200 MILLIGRAM
  41. DICLOFENAC [Suspect]
     Active Substance: DICLOFENAC
     Indication: Product used for unknown indication
  42. DICLOFENAC [Suspect]
     Active Substance: DICLOFENAC
     Indication: Rheumatoid arthritis
     Dosage: 500 MILLIGRAM
  43. DOMPERIDONE [Suspect]
     Active Substance: DOMPERIDONE
     Indication: Product used for unknown indication
  44. ERELZI [Suspect]
     Active Substance: ETANERCEPT-SZZS
     Indication: Rheumatoid arthritis
     Dosage: UNK
  45. ERELZI [Suspect]
     Active Substance: ETANERCEPT-SZZS
     Dosage: 500 MILLIGRAM
  46. ERELZI [Suspect]
     Active Substance: ETANERCEPT-SZZS
     Dosage: 200 MILLIGRAM
  47. ERELZI [Suspect]
     Active Substance: ETANERCEPT-SZZS
     Dosage: 500 MILLIGRAM
  48. ERELZI [Suspect]
     Active Substance: ETANERCEPT-SZZS
     Dosage: 200 MILLIGRAM
  49. FOLIC ACID [Suspect]
     Active Substance: FOLIC ACID
     Indication: Rheumatoid arthritis
     Dosage: 150 MILLIGRAM
  50. FOLIC ACID [Suspect]
     Active Substance: FOLIC ACID
     Dosage: 30 MILLIGRAM
  51. FOLIC ACID [Suspect]
     Active Substance: FOLIC ACID
     Dosage: 5000 MILLIGRAM
  52. FOLIC ACID [Suspect]
     Active Substance: FOLIC ACID
     Dosage: 30 MILLIGRAM
  53. FOLIC ACID [Suspect]
     Active Substance: FOLIC ACID
     Dosage: 10 MILLIGRAM
  54. FOLIC ACID [Suspect]
     Active Substance: FOLIC ACID
     Dosage: 50 MILLIGRAM
  55. FOLIC ACID [Suspect]
     Active Substance: FOLIC ACID
     Dosage: 500 MILLIGRAM
  56. FOLIC ACID [Suspect]
     Active Substance: FOLIC ACID
     Dosage: 10 GRAM
  57. FOLIC ACID [Suspect]
     Active Substance: FOLIC ACID
     Dosage: UNK
  58. FOLIC ACID [Suspect]
     Active Substance: FOLIC ACID
     Dosage: 500 MILLIGRAM
     Route: 061
  59. FOSAMAX [Suspect]
     Active Substance: ALENDRONATE SODIUM
     Indication: Rheumatoid arthritis
  60. FOSAMAX [Suspect]
     Active Substance: ALENDRONATE SODIUM
     Indication: Product used for unknown indication
  61. HYDROMORPHONE HYDROCHLORIDE [Suspect]
     Active Substance: HYDROMORPHONE HYDROCHLORIDE
     Indication: Product used for unknown indication
     Dosage: UNK
  62. HYDROXYCHLOROQUINE [Suspect]
     Active Substance: HYDROXYCHLOROQUINE
     Indication: Product used for unknown indication
     Dosage: UNK
  63. HYDROXYCHLOROQUINE [Suspect]
     Active Substance: HYDROXYCHLOROQUINE
     Indication: Rheumatoid arthritis
     Dosage: UNK
  64. HYDROXYCHLOROQUINE [Suspect]
     Active Substance: HYDROXYCHLOROQUINE
     Dosage: 400 MILLIGRAM, ONCE DAILY (QD)
  65. HYDROXYCHLOROQUINE [Suspect]
     Active Substance: HYDROXYCHLOROQUINE
     Dosage: 40 MILLIGRAM, ONCE DAILY (QD)
  66. HYRIMOZ [Suspect]
     Active Substance: ADALIMUMAB-ADAZ
     Indication: Rheumatoid arthritis
     Dosage: UNK
  67. HYRIMOZ [Suspect]
     Active Substance: ADALIMUMAB-ADAZ
     Dosage: 40 MILLIGRAM
  68. HYRIMOZ [Suspect]
     Active Substance: ADALIMUMAB-ADAZ
     Dosage: 200 MILLIGRAM
  69. HYRIMOZ [Suspect]
     Active Substance: ADALIMUMAB-ADAZ
     Dosage: 400 MILLIGRAM
  70. HYRIMOZ [Suspect]
     Active Substance: ADALIMUMAB-ADAZ
     Dosage: 40 MILLIGRAM
  71. HYRIMOZ [Suspect]
     Active Substance: ADALIMUMAB-ADAZ
     Dosage: 400 MILLIGRAM
  72. INFLIXIMAB [Suspect]
     Active Substance: INFLIXIMAB
     Indication: Rheumatoid arthritis
     Dosage: UNK
  73. INFLIXIMAB [Suspect]
     Active Substance: INFLIXIMAB
     Indication: Psoriatic arthropathy
     Dosage: 4000 MILLIGRAM
  74. INFLIXIMAB [Suspect]
     Active Substance: INFLIXIMAB
     Indication: Colitis ulcerative
  75. INFLIXIMAB [Suspect]
     Active Substance: INFLIXIMAB
     Indication: Product used for unknown indication
  76. MAGNESIUM CHLORIDE [Suspect]
     Active Substance: MAGNESIUM CHLORIDE
     Indication: Product used for unknown indication
     Dosage: SOLUTION LIQUID 100 MILLIGRAM
     Route: 061
  77. MAGNESIUM CHLORIDE [Suspect]
     Active Substance: MAGNESIUM CHLORIDE
     Dosage: UNK
     Route: 061
  78. METHOTREXATE [Suspect]
     Active Substance: METHOTREXATE
     Indication: Rheumatoid arthritis
     Dosage: 10 DOSAGE FORM
     Route: 061
  79. METHOTREXATE [Suspect]
     Active Substance: METHOTREXATE
     Dosage: 10 GRAM
     Route: 061
  80. METHOTREXATE [Suspect]
     Active Substance: METHOTREXATE
     Dosage: 10 MILLIGRAM
     Route: 061
  81. METHOTREXATE [Suspect]
     Active Substance: METHOTREXATE
     Dosage: 150 MILLIGRAM
     Route: 061
  82. METHOTREXATE [Suspect]
     Active Substance: METHOTREXATE
     Dosage: 20 DOSAGE FORM
     Route: 061
  83. METHOTREXATE [Suspect]
     Active Substance: METHOTREXATE
     Dosage: 20 GRAM, ONCE DAILY (QD)
     Route: 061
  84. METHOTREXATE [Suspect]
     Active Substance: METHOTREXATE
     Dosage: 200 MILLIGRAM, ONCE DAILY (QD)
     Route: 061
  85. METHOTREXATE [Suspect]
     Active Substance: METHOTREXATE
     Dosage: 200 MILLIGRAM
     Route: 061
  86. METHOTREXATE [Suspect]
     Active Substance: METHOTREXATE
     Dosage: 250 MILLIGRAM
     Route: 061
  87. METHOTREXATE [Suspect]
     Active Substance: METHOTREXATE
     Dosage: 400 MILLIGRAM
     Route: 061
  88. METHOTREXATE [Suspect]
     Active Substance: METHOTREXATE
     Dosage: 500 MILLIGRAM
     Route: 061
  89. METHOTREXATE [Suspect]
     Active Substance: METHOTREXATE
     Dosage: UNK
     Route: 061
  90. METHOTREXATE [Suspect]
     Active Substance: METHOTREXATE
     Dosage: UNK
  91. METHOTREXATE [Suspect]
     Active Substance: METHOTREXATE
     Dosage: 150 MILLIGRAM, ONCE DAILY (QD)
  92. METHOTREXATE [Suspect]
     Active Substance: METHOTREXATE
     Dosage: 100 MILLIGRAM, ONCE DAILY (QD)
  93. METHOTREXATE [Suspect]
     Active Substance: METHOTREXATE
     Dosage: UNK
  94. ORENCIA [Suspect]
     Active Substance: ABATACEPT
     Indication: Rheumatoid arthritis
     Dosage: 30 MILLIGRAM, 2X/DAY (BID)
     Route: 061
  95. ORENCIA [Suspect]
     Active Substance: ABATACEPT
     Indication: Product used for unknown indication
     Dosage: 17.857 MILLIGRAM
     Route: 061
  96. ORENCIA [Suspect]
     Active Substance: ABATACEPT
     Dosage: 300 MILLIGRAM
     Route: 061
  97. ORENCIA [Suspect]
     Active Substance: ABATACEPT
     Dosage: 10 DOSAGE FORM
  98. ORENCIA [Suspect]
     Active Substance: ABATACEPT
     Dosage: 1250 MILLIGRAM, 2X/DAY (BID)
     Route: 061
  99. ORENCIA [Suspect]
     Active Substance: ABATACEPT
     Dosage: 1250 MILLIGRAM
     Route: 061
  100. ORENCIA [Suspect]
     Active Substance: ABATACEPT
     Dosage: UNK
  101. OXYCODONE [Suspect]
     Active Substance: OXYCODONE
     Indication: Product used for unknown indication
  102. OXYCODONE HYDROCHLORIDE [Suspect]
     Active Substance: OXYCODONE HYDROCHLORIDE
     Indication: Product used for unknown indication
  103. PHENYLEPHRINE HYDROCHLORIDE [Suspect]
     Active Substance: PHENYLEPHRINE HYDROCHLORIDE
     Indication: Product used for unknown indication
     Dosage: 100 MILLIGRAM
  104. PHOSPHORUS [Suspect]
     Active Substance: PHOSPHORUS
     Indication: Product used for unknown indication
  105. VANADIUM [Suspect]
     Active Substance: VANADIUM
     Indication: Rheumatoid arthritis
     Dosage: 400 MILLIGRAM
     Route: 061
  106. VANADIUM [Suspect]
     Active Substance: VANADIUM
     Indication: Abdominal discomfort
     Dosage: 250 MILLIGRAM
     Route: 061
  107. VANADIUM [Suspect]
     Active Substance: VANADIUM
     Dosage: 50 MILLIGRAM
     Route: 061
  108. VANADIUM [Suspect]
     Active Substance: VANADIUM
     Dosage: UNK
  109. VANADIUM [Suspect]
     Active Substance: VANADIUM
     Dosage: UNK
  110. VANADIUM [Suspect]
     Active Substance: VANADIUM
     Dosage: 3650 MILLIGRAM
  111. VANADIUM [Suspect]
     Active Substance: VANADIUM
     Dosage: UNK
  112. APREMILAST [Suspect]
     Active Substance: APREMILAST
     Indication: Product used for unknown indication
     Dosage: 30 MILLIGRAM, ONCE DAILY (QD)
  113. ATOMOXETINE HYDROCHLORIDE [Suspect]
     Active Substance: ATOMOXETINE HYDROCHLORIDE
     Indication: Product used for unknown indication
     Dosage: 20 DOSAGE FORM, ONCE DAILY (QD)
  114. ATOMOXETINE HYDROCHLORIDE [Suspect]
     Active Substance: ATOMOXETINE HYDROCHLORIDE
     Indication: Migraine
  115. LEFLUNOMIDE [Suspect]
     Active Substance: LEFLUNOMIDE
     Indication: Rheumatoid arthritis
     Dosage: 100 MILLIGRAM, ONCE DAILY (QD)
     Route: 061
  116. LEFLUNOMIDE [Suspect]
     Active Substance: LEFLUNOMIDE
     Dosage: 100 MILLIGRAM
     Route: 061
  117. LEFLUNOMIDE [Suspect]
     Active Substance: LEFLUNOMIDE
     Dosage: 200 MILLIGRAM
     Route: 061
  118. LEFLUNOMIDE [Suspect]
     Active Substance: LEFLUNOMIDE
     Dosage: 10 MILLIGRAM
     Route: 061
  119. LEFLUNOMIDE [Suspect]
     Active Substance: LEFLUNOMIDE
     Dosage: 200 MILLIGRAM, ONCE DAILY (QD)
     Route: 061
  120. LEFLUNOMIDE [Suspect]
     Active Substance: LEFLUNOMIDE
     Dosage: UNK
     Route: 061
  121. MYCOPHENOLATE MOFETIL [Suspect]
     Active Substance: MYCOPHENOLATE MOFETIL
     Indication: Rheumatoid arthritis
  122. MYCOPHENOLATE MOFETIL [Suspect]
     Active Substance: MYCOPHENOLATE MOFETIL
     Indication: Product used for unknown indication
  123. PANTOPRAZOLE SODIUM [Suspect]
     Active Substance: PANTOPRAZOLE SODIUM
     Indication: Product used for unknown indication
     Dosage: UNK
  124. PANTOPRAZOLE SODIUM [Suspect]
     Active Substance: PANTOPRAZOLE SODIUM
     Dosage: UNK
  125. SULFASALAZINE [Suspect]
     Active Substance: SULFASALAZINE
     Indication: Product used for unknown indication
     Dosage: 10 DOSAGE FORM
  126. SULFASALAZINE [Suspect]
     Active Substance: SULFASALAZINE
     Dosage: 10 MILLIGRAM
  127. SULFASALAZINE [Suspect]
     Active Substance: SULFASALAZINE
     Dosage: 100 MILLIGRAM
     Route: 061
  128. SULFASALAZINE [Suspect]
     Active Substance: SULFASALAZINE
     Dosage: 20 MILLIGRAM
     Route: 061
  129. SULFASALAZINE [Suspect]
     Active Substance: SULFASALAZINE
     Dosage: 1000 MILLIGRAM
     Route: 061
  130. SULFASALAZINE [Suspect]
     Active Substance: SULFASALAZINE
     Dosage: 5000 MILLIGRAM
     Route: 061
  131. SULFASALAZINE [Suspect]
     Active Substance: SULFASALAZINE
     Dosage: 3000 MILLIGRAM, ONCE DAILY (QD)
     Route: 061
  132. SULFASALAZINE [Suspect]
     Active Substance: SULFASALAZINE
     Dosage: 20 GRAM, ONCE DAILY (QD)
     Route: 061
  133. SULFATHIAZOLE [Suspect]
     Active Substance: SULFATHIAZOLE
     Indication: Product used for unknown indication
     Dosage: SPRAY
  134. TRIAMCINOLONE [Suspect]
     Active Substance: TRIAMCINOLONE
     Indication: Product used for unknown indication
     Dosage: 250 MILLIGRAM
  135. TRIAMCINOLONE [Suspect]
     Active Substance: TRIAMCINOLONE
     Dosage: UNK
  136. VITAMIN C [Suspect]
     Active Substance: ASCORBIC ACID
     Indication: Product used for unknown indication
  137. VOLTAREN [Suspect]
     Active Substance: DICLOFENAC SODIUM
     Indication: Product used for unknown indication
  138. ARAVA [Suspect]
     Active Substance: LEFLUNOMIDE
     Indication: Rheumatoid arthritis
     Dosage: 20 MILLIGRAM, ONCE DAILY (QD)
  139. ARAVA [Suspect]
     Active Substance: LEFLUNOMIDE
     Dosage: 20 MILLIGRAM, ONCE DAILY (QD)
     Route: 061
  140. ARAVA [Suspect]
     Active Substance: LEFLUNOMIDE
     Dosage: UNK
     Route: 061
  141. CALCIUM GLUBIONATE [Suspect]
     Active Substance: CALCIUM GLUBIONATE
     Indication: Product used for unknown indication
  142. CETRIMIDE [Suspect]
     Active Substance: CETRIMIDE
     Indication: Product used for unknown indication
     Dosage: UNK
  143. CHLORHEXIDINE [Suspect]
     Active Substance: CHLORHEXIDINE
     Indication: Product used for unknown indication
  144. CHLORHEXIDINE [Suspect]
     Active Substance: CHLORHEXIDINE
     Route: 048
  145. CORTISONE ACETATE [Suspect]
     Active Substance: CORTISONE ACETATE
     Indication: Rheumatoid arthritis
     Route: 061
  146. CORTISONE ACETATE [Suspect]
     Active Substance: CORTISONE ACETATE
  147. CORTISONE ACETATE [Suspect]
     Active Substance: CORTISONE ACETATE
  148. CORTISONE ACETATE [Suspect]
     Active Substance: CORTISONE ACETATE
     Dosage: 20 MILLIGRAM
  149. CORTISONE ACETATE [Suspect]
     Active Substance: CORTISONE ACETATE
     Dosage: 25 MILLIGRAM
  150. CORTISONE ACETATE [Suspect]
     Active Substance: CORTISONE ACETATE
     Dosage: 25 MILLIGRAM, ONCE DAILY (QD)

REACTIONS (155)
  - Bone erosion [Fatal]
  - Bronchitis [Fatal]
  - C-reactive protein abnormal [Fatal]
  - Crohn^s disease [Fatal]
  - Drug-induced liver injury [Fatal]
  - Ear infection [Fatal]
  - Ear pain [Fatal]
  - Hepatic cirrhosis [Fatal]
  - Joint stiffness [Fatal]
  - Laryngitis [Fatal]
  - Tachycardia [Fatal]
  - Ulcer haemorrhage [Fatal]
  - Upper respiratory tract infection [Fatal]
  - Arthralgia [Fatal]
  - Asthenia [Fatal]
  - Asthma [Fatal]
  - Blister [Fatal]
  - Blood cholesterol increased [Fatal]
  - Bursitis [Fatal]
  - C-reactive protein increased [Fatal]
  - Chest pain [Fatal]
  - Confusional state [Fatal]
  - Contusion [Fatal]
  - Deep vein thrombosis postoperative [Fatal]
  - Diarrhoea [Fatal]
  - Dizziness [Fatal]
  - Drug hypersensitivity [Fatal]
  - Hand deformity [Fatal]
  - Hepatic enzyme increased [Fatal]
  - Hypercholesterolaemia [Fatal]
  - Hypersensitivity [Fatal]
  - Hypertension [Fatal]
  - Hypertransaminasaemia [Fatal]
  - Infusion related reaction [Fatal]
  - Joint swelling [Fatal]
  - Leukopenia [Fatal]
  - Liver injury [Fatal]
  - Muscle spasms [Fatal]
  - Nasopharyngitis [Fatal]
  - Night sweats [Fatal]
  - Obesity [Fatal]
  - Osteoarthritis [Fatal]
  - Pain in extremity [Fatal]
  - Paraesthesia [Fatal]
  - Peripheral swelling [Fatal]
  - Peripheral venous disease [Fatal]
  - Psoriatic arthropathy [Fatal]
  - Sleep disorder [Fatal]
  - Stomatitis [Fatal]
  - Synovitis [Fatal]
  - Rheumatoid arthritis [Fatal]
  - Systemic lupus erythematosus [Fatal]
  - Type 2 diabetes mellitus [Fatal]
  - Urticaria [Fatal]
  - Weight increased [Fatal]
  - Wheezing [Fatal]
  - Wound infection [Fatal]
  - Wound [Fatal]
  - Visual impairment [Fatal]
  - Vomiting [Fatal]
  - Weight decreased [Fatal]
  - Dislocation of vertebra [Fatal]
  - Abdominal pain [Fatal]
  - Abdominal pain upper [Fatal]
  - Adjustment disorder with depressed mood [Fatal]
  - Adrenal insufficiency [Fatal]
  - Alopecia [Fatal]
  - Anti-cyclic citrullinated peptide antibody [Fatal]
  - Anti-cyclic citrullinated peptide antibody positive [Fatal]
  - Anxiety [Fatal]
  - Arthritis [Fatal]
  - Arthropathy [Fatal]
  - Autoimmune disorder [Fatal]
  - Back injury [Fatal]
  - Blepharospasm [Fatal]
  - Breast cancer stage II [Fatal]
  - Breast cancer stage III [Fatal]
  - Decreased appetite [Fatal]
  - Depression [Fatal]
  - Dry mouth [Fatal]
  - Duodenal ulcer perforation [Fatal]
  - Dyspepsia [Fatal]
  - Epilepsy [Fatal]
  - Exostosis [Fatal]
  - Facet joint syndrome [Fatal]
  - Fatigue [Fatal]
  - Feeling hot [Fatal]
  - Fibromyalgia [Fatal]
  - Folliculitis [Fatal]
  - Foot deformity [Fatal]
  - Frequent bowel movements [Fatal]
  - Gait disturbance [Fatal]
  - Gait inability [Fatal]
  - Gastrointestinal disorder [Fatal]
  - Gastrooesophageal reflux disease [Fatal]
  - General physical health deterioration [Fatal]
  - X-ray abnormal [Fatal]
  - Glossodynia [Fatal]
  - Grip strength decreased [Fatal]
  - Helicobacter infection [Fatal]
  - Hypoaesthesia [Fatal]
  - Hypokalaemia [Fatal]
  - Immunodeficiency [Fatal]
  - Impaired healing [Fatal]
  - Inflammation [Fatal]
  - Inflammation [Fatal]
  - Insomnia [Fatal]
  - Irritable bowel syndrome [Fatal]
  - Joint destruction [Fatal]
  - Joint dislocation [Fatal]
  - Joint range of motion decreased [Fatal]
  - Liver disorder [Fatal]
  - Liver function test increased [Fatal]
  - Loss of consciousness [Fatal]
  - Lower limb fracture [Fatal]
  - Lower respiratory tract infection [Fatal]
  - Lung disorder [Fatal]
  - Lupus vulgaris [Fatal]
  - Lupus-like syndrome [Fatal]
  - Memory impairment [Fatal]
  - Mobility decreased [Fatal]
  - Muscle injury [Fatal]
  - Muscular weakness [Fatal]
  - Musculoskeletal pain [Fatal]
  - Musculoskeletal stiffness [Fatal]
  - Nail disorder [Fatal]
  - Nausea [Fatal]
  - Neck pain [Fatal]
  - Oedema [Fatal]
  - Oedema peripheral [Fatal]
  - Onychomadesis [Fatal]
  - Osteoporosis [Fatal]
  - Pericarditis [Fatal]
  - Pneumonia [Fatal]
  - Polyarthritis [Fatal]
  - Pruritus [Fatal]
  - Psoriasis [Fatal]
  - Pulmonary fibrosis [Fatal]
  - Pyrexia [Fatal]
  - Rash [Fatal]
  - Rash pruritic [Fatal]
  - Red blood cell sedimentation rate increased [Fatal]
  - Respiratory disorder [Fatal]
  - Retinitis [Fatal]
  - Rheumatic fever [Fatal]
  - Rheumatoid factor positive [Fatal]
  - Road traffic accident [Fatal]
  - Sciatica [Fatal]
  - Sinusitis [Fatal]
  - Swollen joint count increased [Fatal]
  - Taste disorder [Fatal]
  - Weight fluctuation [Fatal]
  - Feeling abnormal [Fatal]
  - Maternal exposure during pregnancy [Fatal]
  - Live birth [Fatal]
